FAERS Safety Report 8027691-0 (Version None)
Quarter: 2012Q1

REPORT INFORMATION
  Report Type: 
  Country: None (occurrence: None)
  Receive Date: 20120104
  Receipt Date: 20111220
  Transmission Date: 20120608
  Serious: Yes (Hospitalization)
  Sender: FDA-Public Use
  Company Number: 1000026185

PATIENT
  Age: 46 Year
  Sex: Female

DRUGS (9)
  1. ROFLUMILAST (ROFLUMILAST) (TABLETS) [Suspect]
     Indication: CHRONIC OBSTRUCTIVE PULMONARY DISEASE
     Dosage: 500 MCG (500 MCG, 1 IN 1 D), ORAL
     Route: 048
     Dates: start: 20111028, end: 20111104
  2. FURIX (FUROSEMIDE) (FUROSEMIDE) [Concomitant]
  3. VENTOLIN (SALBUTAMOL) (SALBUTAMOL) [Concomitant]
  4. SYMBICORT (BUDESONIDE, /FORMOTEROL FUMARATE) (BUDESONIDE, /FORMOTEROL [Concomitant]
  5. SPIRIVA (TIOTROPIUM BROMIDE) (TIOTROPIUM BROMIDE) [Concomitant]
  6. MYCOSTATIN (NYSTATIN) (NYSTATIN) [Concomitant]
  7. BRONKYL (ACETYLCYSTEINE) (ACETYLCYSTEINE) [Concomitant]
  8. ATACAND [Concomitant]
  9. ALBYL-E (ALBYL-ENTEROSOLUBILE) (ALBYL-ENTEROSOLUBILE) [Concomitant]

REACTIONS (8)
  - DRUG INTERACTION [None]
  - MYOCARDIAL INFARCTION [None]
  - GENERAL PHYSICAL HEALTH DETERIORATION [None]
  - ELECTROCARDIOGRAM ST-T CHANGE [None]
  - CONDITION AGGRAVATED [None]
  - RESTLESSNESS [None]
  - CARDIAC FAILURE [None]
  - TACHYCARDIA [None]
